FAERS Safety Report 14142738 (Version 1)
Quarter: 2017Q4

REPORT INFORMATION
  Report Type: Spontaneous
  Country: DE (occurrence: DE)
  Receive Date: 20171030
  Receipt Date: 20171030
  Transmission Date: 20180321
  Serious: Yes (Other)
  Sender: FDA-Public Use
  Company Number: DE-AMGEN-DEUSP2017160811

PATIENT
  Age: 74 Year
  Sex: Female

DRUGS (1)
  1. PROLIA [Suspect]
     Active Substance: DENOSUMAB
     Indication: OSTEOPOROSIS POSTMENOPAUSAL
     Dosage: UNK
     Route: 065
     Dates: start: 2013

REACTIONS (7)
  - Impaired healing [Unknown]
  - Neuralgia [Unknown]
  - Myalgia [Unknown]
  - Pneumonia [Unknown]
  - Cataract [Unknown]
  - Diverticulitis [Unknown]
  - Arthralgia [Unknown]
